FAERS Safety Report 5604056-X (Version None)
Quarter: 2008Q1

REPORT INFORMATION
  Report Type: 
  Country: None (occurrence: None)
  Receive Date: 20080128
  Receipt Date: 20080117
  Transmission Date: 20080703
  Serious: Yes (Other)
  Sender: FDA-Public Use
  Company Number: PHBS2008US01008

PATIENT
  Age: 43 Year
  Sex: Female

DRUGS (2)
  1. PERIFOSINE [Suspect]
     Dosage: 900 MG/WEEK (3 DIVIDED DOSES OF 300 MG EACH)
     Route: 065
  2. GLEEVEC [Suspect]
     Indication: GASTROINTESTINAL STROMAL TUMOUR
     Route: 065

REACTIONS (3)
  - EYE IRRITATION [None]
  - SLIT-LAMP TESTS ABNORMAL [None]
  - ULCERATIVE KERATITIS [None]
